FAERS Safety Report 6854439-5 (Version None)
Quarter: 2010Q3

REPORT INFORMATION
  Report Type: 
  Country: None (occurrence: None)
  Receive Date: 20100717
  Receipt Date: 20080104
  Transmission Date: 20110219
  Serious: No
  Sender: FDA-Public Use
  Company Number: US-PFIZER INC-2008002869

PATIENT
  Sex: Female

DRUGS (4)
  1. CHANTIX [Suspect]
  2. MORPHINE [Concomitant]
  3. MORPHINE-SP [Concomitant]
  4. TYLENOL [Concomitant]
     Indication: BREAKTHROUGH PAIN

REACTIONS (4)
  - ABDOMINAL DISTENSION [None]
  - CONSTIPATION [None]
  - FLATULENCE [None]
  - NAUSEA [None]
